FAERS Safety Report 12933445 (Version 2)
Quarter: 2016Q4

REPORT INFORMATION
  Report Type: Spontaneous
  Country: US (occurrence: US)
  Receive Date: 20161111
  Receipt Date: 20161114
  Transmission Date: 20170207
  Serious: No
  Sender: FDA-Public Use
  Company Number: US-009507513-1610USA008763

PATIENT
  Sex: Female

DRUGS (2)
  1. JANUMET [Suspect]
     Active Substance: METFORMIN HYDROCHLORIDE\SITAGLIPTIN PHOSPHATE
     Dosage: 50/1000 MG, TWICE DAILY
     Route: 048
  2. JANUMET [Suspect]
     Active Substance: METFORMIN HYDROCHLORIDE\SITAGLIPTIN PHOSPHATE
     Indication: HYPERTENSION
     Dosage: 50/1000 MG, TWICE DAILY
     Route: 048

REACTIONS (4)
  - Product use issue [Unknown]
  - Exposure to mould [Unknown]
  - Product packaging issue [Unknown]
  - No adverse event [Unknown]
